FAERS Safety Report 5049233-4 (Version None)
Quarter: 2006Q3

REPORT INFORMATION
  Report Type: 
  Country: None (occurrence: None)
  Receive Date: 20060707
  Receipt Date: 20060629
  Transmission Date: 20061208
  Serious: Yes (Hospitalization)
  Sender: FDA-Public Use
  Company Number: 2006-06-0385

PATIENT
  Age: 70 Year
  Sex: Male
  Weight: 81.6475 kg

DRUGS (4)
  1. INTRON A [Suspect]
     Indication: RENAL CELL CARCINOMA STAGE UNSPECIFIED
     Dosage: 9 MIU QOD
     Dates: start: 20051117, end: 20060612
  2. LEXAPRO [Concomitant]
  3. TRAZODONE HCL [Concomitant]
  4. NORVASC [Concomitant]

REACTIONS (6)
  - ABASIA [None]
  - BALANCE DISORDER [None]
  - CSF PROTEIN INCREASED [None]
  - IMPAIRED DRIVING ABILITY [None]
  - LOSS OF CONSCIOUSNESS [None]
  - SPEECH DISORDER [None]
